FAERS Safety Report 4359362-6 (Version None)
Quarter: 2004Q2

REPORT INFORMATION
  Report Type: 
  Country: None (occurrence: None)
  Receive Date: 20040518
  Receipt Date: 20040506
  Transmission Date: 20050107
  Serious: Yes (Hospitalization)
  Sender: FDA-Public Use
  Company Number: GB-JNJFOC-20040500901

PATIENT
  Age: 59 Year
  Sex: Female

DRUGS (7)
  1. REMICADE [Suspect]
     Indication: RHEUMATOID ARTHRITIS
     Route: 042
  2. METHOTREXATE [Concomitant]
     Route: 049
  3. DISTALGESIC [Concomitant]
     Route: 049
  4. DISTALGESIC [Concomitant]
     Route: 049
  5. ARTHROTEC [Concomitant]
     Route: 049
  6. ARTHROTEC [Concomitant]
     Route: 049
  7. PREDNISOLONE [Concomitant]
     Route: 049

REACTIONS (37)
  - ABDOMINAL TENDERNESS [None]
  - ACTIVATED PARTIAL THROMBOPLASTIN TIME SHORTENED [None]
  - ANURIA [None]
  - ARTHRALGIA [None]
  - BACK PAIN [None]
  - BASE EXCESS POSITIVE [None]
  - BLOOD ALBUMIN INCREASED [None]
  - BLOOD BILIRUBIN INCREASED [None]
  - BLOOD CULTURE POSITIVE [None]
  - BLOOD LACTIC ACID INCREASED [None]
  - BLOOD PH DECREASED [None]
  - BLOOD UREA DECREASED [None]
  - CHEST PAIN [None]
  - CLOSTRIDIAL INFECTION [None]
  - CYANOSIS [None]
  - DIARRHOEA INFECTIOUS [None]
  - DISSEMINATED INTRAVASCULAR COAGULATION [None]
  - EOSINOPHIL COUNT INCREASED [None]
  - FEELING ABNORMAL [None]
  - GAMMA-GLUTAMYLTRANSFERASE INCREASED [None]
  - HAEMODIALYSIS [None]
  - HAEMOGLOBIN DECREASED [None]
  - HEPATIC FUNCTION ABNORMAL [None]
  - HYPERTENSION [None]
  - HYPOVOLAEMIC SHOCK [None]
  - INTERNATIONAL NORMALISED RATIO DECREASED [None]
  - LOOSE STOOLS [None]
  - LUNG CREPITATION [None]
  - MULTI-ORGAN FAILURE [None]
  - MUSCULOSKELETAL STIFFNESS [None]
  - NEUTROPHIL COUNT ABNORMAL [None]
  - RENAL FAILURE ACUTE [None]
  - RESPIRATORY FAILURE [None]
  - SOMNOLENCE [None]
  - STREPTOCOCCAL INFECTION [None]
  - TACHYCARDIA [None]
  - VOMITING [None]
